FAERS Safety Report 6196240-4 (Version None)
Quarter: 2009Q2

REPORT INFORMATION
  Report Type: 
  Country: None (occurrence: None)
  Receive Date: 20090520
  Receipt Date: 20090511
  Transmission Date: 20091009
  Serious: Yes (Hospitalization)
  Sender: FDA-Public Use
  Company Number: PHHO2009JP05976

PATIENT

DRUGS (2)
  1. EXELON [Suspect]
     Indication: DEMENTIA ALZHEIMER'S TYPE
     Dosage: 2.5CM^2
     Route: 062
     Dates: start: 20090314, end: 20090410
  2. EXELON [Suspect]
     Dosage: 5CM^2
     Route: 062
     Dates: start: 20090411, end: 20090511

REACTIONS (1)
  - FEMUR FRACTURE [None]
